FAERS Safety Report 19167407 (Version 1)
Quarter: 2021Q2

REPORT INFORMATION
  Report Type: Spontaneous
  Country: US (occurrence: US)
  Receive Date: 20210420
  Receipt Date: 20210420
  Transmission Date: 20210717
  Serious: Yes (Death, Life-Threatening)
  Sender: FDA-Public Use
  Company Number: None

PATIENT
  Age: 56 Year
  Sex: Female
  Weight: 68 kg

DRUGS (1)
  1. PERTUZUMAB. [Suspect]
     Active Substance: PERTUZUMAB
     Indication: BREAST CANCER METASTATIC
     Route: 040
     Dates: start: 20210409, end: 20210409

REACTIONS (8)
  - Respiratory distress [None]
  - Chills [None]
  - Multiple organ dysfunction syndrome [None]
  - Disseminated intravascular coagulation [None]
  - Wheezing [None]
  - Tachycardia [None]
  - Ecchymosis [None]
  - Tremor [None]

NARRATIVE: CASE EVENT DATE: 20210409
